FAERS Safety Report 7647933-0 (Version None)
Quarter: 2011Q3

REPORT INFORMATION
  Report Type: 
  Country: None (occurrence: None)
  Receive Date: 20110801
  Receipt Date: 20110727
  Transmission Date: 20111222
  Serious: Yes (Other)
  Sender: FDA-Public Use
  Company Number: TR-PFIZER INC-2011170778

PATIENT
  Age: 40 Year
  Sex: Male

DRUGS (8)
  1. LINEZOLID [Concomitant]
     Dosage: UNK
     Route: 042
     Dates: start: 20090722, end: 20090731
  2. IMIPENEM [Concomitant]
     Dosage: UNK
     Route: 042
     Dates: start: 20090715, end: 20090723
  3. CLARITHROMYCIN [Concomitant]
     Dosage: UNK
     Route: 042
     Dates: start: 20090723, end: 20090730
  4. CIPRO [Concomitant]
     Dosage: UNK
     Route: 042
     Dates: start: 20090730
  5. CEFOPERAZONE SODIUM [Suspect]
     Dosage: 6 G, 2X/DAY
     Route: 042
     Dates: start: 20080710, end: 20090715
  6. TIGECYCLINE [Concomitant]
     Dosage: UNK
     Route: 042
     Dates: start: 20090723
  7. VFEND [Concomitant]
     Dosage: UNK
     Route: 042
     Dates: start: 20090718, end: 20090730
  8. AMBISOME [Concomitant]
     Dosage: UNK
     Route: 042
     Dates: start: 20090730

REACTIONS (1)
  - RASH [None]
